FAERS Safety Report 9321961 (Version 1)
Quarter: 2013Q2

REPORT INFORMATION
  Report Type: Spontaneous
  Country: US (occurrence: US)
  Receive Date: 20130531
  Receipt Date: 20130531
  Transmission Date: 20140414
  Serious: No
  Sender: FDA-Public Use
  Company Number: US-009507513-1305USA017320

PATIENT
  Sex: Female

DRUGS (6)
  1. NASONEX [Suspect]
     Dosage: 1 SPRAY, BID
     Route: 045
  2. HYDROCORTISONE [Concomitant]
  3. HYDROCODONE [Concomitant]
  4. SOMA [Concomitant]
  5. TOPAMAX [Concomitant]
  6. FIORICET [Concomitant]

REACTIONS (3)
  - Oropharyngeal pain [Recovered/Resolved]
  - Headache [Recovered/Resolved]
  - Incorrect dose administered [Unknown]
